FAERS Safety Report 9053524 (Version 1)
Quarter: 2013Q1

REPORT INFORMATION
  Report Type: Spontaneous
  Country: US (occurrence: None)
  Receive Date: 20130201
  Receipt Date: 20130201
  Transmission Date: 20140127
  Serious: Yes (Other)
  Sender: FDA-Public Use
  Company Number: None

PATIENT
  Age: 53 Year
  Sex: Female
  Weight: 60.2 kg

DRUGS (1)
  1. GOLIMUMAB [Suspect]
     Indication: RHEUMATOID ARTHRITIS
     Route: 058

REACTIONS (6)
  - Acute respiratory distress syndrome [None]
  - Pneumonia bacterial [None]
  - Pulmonary cavitation [None]
  - Infection in an immunocompromised host [None]
  - Histoplasmosis disseminated [None]
  - Staphylococcal infection [None]
